FAERS Safety Report 4971802-8 (Version None)
Quarter: 2006Q2

REPORT INFORMATION
  Report Type: 
  Country: None (occurrence: None)
  Receive Date: 20060413
  Receipt Date: 20060402
  Transmission Date: 20061013
  Serious: Yes (Hospitalization)
  Sender: FDA-Public Use
  Company Number: SA-JNJFOC-20060402096

PATIENT
  Age: 21 Year
  Sex: Male

DRUGS (1)
  1. REMICADE [Suspect]
     Indication: UVEITIS
     Dosage: TAKEN WEEKS 0, 2, 8 AND THEN AFTER EVERY 8 WEEKS.
     Route: 042

REACTIONS (1)
  - CATARACT [None]
